FAERS Safety Report 4857552-7 (Version None)
Quarter: 2005Q4

REPORT INFORMATION
  Report Type: 
  Country: None (occurrence: None)
  Receive Date: 20051219
  Receipt Date: 20050517
  Transmission Date: 20060501
  Serious: No
  Sender: FDA-Public Use
  Company Number: US-GLAXOSMITHKLINE-A0558928A

PATIENT
  Age: 58 Year
  Sex: Female

DRUGS (2)
  1. NICODERM CQ [Suspect]
     Dates: start: 20050406, end: 20050419
  2. NICODERM CQ [Suspect]
     Dates: start: 20050420

REACTIONS (3)
  - ABNORMAL DREAMS [None]
  - SLEEP DISORDER [None]
  - WEIGHT INCREASED [None]
